FAERS Safety Report 7462194-3 (Version None)
Quarter: 2011Q2

REPORT INFORMATION
  Report Type: 
  Country: None (occurrence: None)
  Receive Date: 20110506
  Receipt Date: 20101208
  Transmission Date: 20111010
  Serious: Yes (Hospitalization)
  Sender: FDA-Public Use
  Company Number: US-BAYER-201023652NA

PATIENT
  Age: 29 Year
  Sex: Female
  Weight: 136.5 kg

DRUGS (7)
  1. CLARITIN [Concomitant]
     Indication: MULTIPLE ALLERGIES
     Dosage: UNK
     Dates: start: 20080101
  2. CITALOPRAM [Concomitant]
  3. YAZ [Suspect]
     Indication: MENORRHAGIA
     Dosage: 3 U, QD
     Route: 048
     Dates: start: 20080221, end: 20080505
  4. LAMICTAL [Concomitant]
     Dosage: 100 MG, UNK
  5. KLONOPIN [Concomitant]
  6. TRAZODONE [Concomitant]
  7. NSAID'S [Concomitant]
     Dosage: UNK UNK, PRN

REACTIONS (3)
  - PAIN [None]
  - DYSPNOEA [None]
  - PULMONARY EMBOLISM [None]
